FAERS Safety Report 22343665 (Version 1)
Quarter: 2023Q2

REPORT INFORMATION
  Report Type: Spontaneous
  Country: ES (occurrence: ES)
  Receive Date: 20230519
  Receipt Date: 20230519
  Transmission Date: 20230722
  Serious: Yes (Hospitalization)
  Sender: FDA-Public Use
  Company Number: ES-AEMPS-1344222

PATIENT
  Age: 46 Year
  Sex: Female

DRUGS (5)
  1. HYDROCHLOROTHIAZIDE\RAMIPRIL [Suspect]
     Active Substance: HYDROCHLOROTHIAZIDE\RAMIPRIL
     Indication: Hypertension
     Dosage: 1.0 COMP C/24 H
     Route: 048
     Dates: start: 20220222, end: 20221008
  2. LERCANIDIPINE [Suspect]
     Active Substance: LERCANIDIPINE
     Indication: Hypertension
     Dosage: 20.0 MG C/24 H
     Route: 048
     Dates: start: 20220525, end: 20221008
  3. OMEPRAZOL CINFAMED 20 mg CAPSULAS DURAS GASTRORESISTENTES EFG , 56 cap [Concomitant]
     Indication: Dyspepsia
     Dosage: 20.0 MG A-DE
     Route: 048
     Dates: start: 20180822
  4. ASPIRIN [Concomitant]
     Active Substance: ASPIRIN
     Indication: Cerebrovascular disorder
     Dosage: 100.0 MG DE
     Route: 048
     Dates: start: 20180822
  5. DIAZEPAM CINFA 5 MG COMPRIMIDOS EFG, 40 comprimidos [Concomitant]
     Indication: Myoclonus
     Dosage: 5.0 MG C/24 H NOC
     Route: 048
     Dates: start: 20220212

REACTIONS (1)
  - Orthostatic hypotension [Recovered/Resolved]

NARRATIVE: CASE EVENT DATE: 20221008
